FAERS Safety Report 25749981 (Version 1)
Quarter: 2025Q3

REPORT INFORMATION
  Report Type: Spontaneous
  Country: US (occurrence: US)
  Receive Date: 20250902
  Receipt Date: 20250902
  Transmission Date: 20251020
  Serious: No
  Sender: BRISTOL-MYERS SQUIBB COMPANY
  Company Number: US-BRISTOL-MYERS SQUIBB COMPANY-2025-121232

PATIENT

DRUGS (3)
  1. ELIQUIS [Suspect]
     Active Substance: APIXABAN
     Indication: Pain
  2. ELIQUIS [Suspect]
     Active Substance: APIXABAN
     Indication: Anxiety
  3. NORCO [Suspect]
     Active Substance: ACETAMINOPHEN\HYDROCODONE BITARTRATE
     Indication: Product used for unknown indication

REACTIONS (3)
  - Emotional disorder [Unknown]
  - Off label use [Unknown]
  - Stab wound [Unknown]

NARRATIVE: CASE EVENT DATE: 20250801
